FAERS Safety Report 10858248 (Version 3)
Quarter: 2015Q1

REPORT INFORMATION
  Report Type: Other
  Country: GB (occurrence: GB)
  Receive Date: 20150223
  Receipt Date: 20150326
  Transmission Date: 20150721
  Serious: Yes (Other)
  Sender: FDA-Public Use
  Company Number: GB-MYLANLABS-2015M1004141

PATIENT

DRUGS (6)
  1. LANSOPRAZOLE. [Suspect]
     Active Substance: LANSOPRAZOLE
     Dosage: UNK
  2. ALGESAL [Concomitant]
     Dosage: UNK
     Dates: start: 20150114
  3. NAPROXEN. [Concomitant]
     Active Substance: NAPROXEN
     Dosage: UNK
     Dates: start: 20150114
  4. OMEPRAZOLE. [Concomitant]
     Active Substance: OMEPRAZOLE
     Dosage: UNK
     Dates: start: 20141230, end: 20150127
  5. PROCTOSEDYL [Concomitant]
     Active Substance: DIBUCAINE HYDROCHLORIDE\HYDROCORTISONE
     Dosage: UNK
     Dates: start: 20150114, end: 20150121
  6. COCODAMOL [Concomitant]
     Active Substance: ACETAMINOPHEN\CODEINE PHOSPHATE
     Dosage: UNK
     Dates: start: 20150116, end: 20150126

REACTIONS (2)
  - Palpitations [Unknown]
  - Swollen tongue [Unknown]

NARRATIVE: CASE EVENT DATE: 20150201
